FAERS Safety Report 24698229 (Version 12)
Quarter: 2025Q2

REPORT INFORMATION
  Report Type: Report from Study
  Country: MX (occurrence: MX)
  Receive Date: 20241204
  Receipt Date: 20250611
  Transmission Date: 20250717
  Serious: Yes (Other)
  Sender: NOVARTIS
  Company Number: MX-002147023-NVSC2024MX155970

PATIENT
  Age: 55 Year
  Sex: Female
  Weight: 82 kg

DRUGS (23)
  1. KISQALI [Suspect]
     Active Substance: RIBOCICLIB SUCCINATE
     Indication: Breast cancer
     Dosage: 3 DOSAGE FORM, QD (200MG)
     Route: 048
     Dates: start: 20240601
  2. KISQALI [Suspect]
     Active Substance: RIBOCICLIB SUCCINATE
     Indication: Ganglioglioma
     Dosage: 3 DOSAGE FORM, QD (200MG)
     Route: 048
     Dates: start: 202406
  3. KISQALI [Suspect]
     Active Substance: RIBOCICLIB SUCCINATE
     Dosage: 3 DOSAGE FORM, QD (200MG)
     Route: 048
     Dates: start: 20240610
  4. KISQALI [Suspect]
     Active Substance: RIBOCICLIB SUCCINATE
     Dosage: 3 DOSAGE FORM, (3 X 200 MG TABLET) QD
     Route: 048
     Dates: start: 20240624
  5. KISQALI [Suspect]
     Active Substance: RIBOCICLIB SUCCINATE
     Dosage: 3 DOSAGE FORM OF 200 MG, QD
     Route: 048
     Dates: start: 202406
  6. KISQALI [Suspect]
     Active Substance: RIBOCICLIB SUCCINATE
     Dosage: 3 DOSAGE FORM OF 200 MG, QD
     Route: 048
     Dates: start: 202406
  7. FEMARA [Suspect]
     Active Substance: LETROZOLE
     Indication: Breast cancer
     Dosage: 1 DOSAGE FORM, QD (2.5 MG)
     Route: 048
     Dates: start: 20240610
  8. ANASTROZOLE [Concomitant]
     Active Substance: ANASTROZOLE
     Indication: Breast cancer
     Dosage: 1 DOSAGE FORM (1 X 1MG) (TABLET)
     Route: 048
     Dates: start: 20240601
  9. LEVOTHYROXINE [Concomitant]
     Active Substance: LEVOTHYROXINE
     Indication: Hypothyroidism
     Dosage: 1.25 (TABLET) OF 100 UG, QD (13 YEARS AGO, EXACT DATE UNKNOWN)
     Route: 048
  10. LEVOTHYROXINE [Concomitant]
     Active Substance: LEVOTHYROXINE
     Dosage: 1 DOSAGE FORM (1 X 100 MCG) 13 YEARS AGO, EXACT DATE UNKNOWN
     Route: 048
  11. VENLAFAXINE [Concomitant]
     Active Substance: VENLAFAXINE HYDROCHLORIDE
     Indication: Depression
     Route: 048
     Dates: start: 2011
  12. VENLAFAXINE [Concomitant]
     Active Substance: VENLAFAXINE HYDROCHLORIDE
     Dosage: 2 DOSAGE FORM, QD (2 OF 75MG) (10 YEARS AGO)
     Route: 048
  13. VENLAFAXINE [Concomitant]
     Active Substance: VENLAFAXINE HYDROCHLORIDE
     Dosage: 75 MG TABLET, QD, EXACT DATE UNKNOWN
     Route: 048
     Dates: start: 202406
  14. METOPROLOL [Concomitant]
     Active Substance: METOPROLOL
     Indication: Hypertension
     Dosage: 1 (TABLET) OF 100 MG, Q12H (13 YEARS AGO (EXACT DATE UNKNOWN)
     Route: 048
  15. HYDROCHLOROTHIAZIDE [Concomitant]
     Active Substance: HYDROCHLOROTHIAZIDE
     Indication: Product used for unknown indication
     Dosage: ? (TABLET) OF 25 MG, QD (30 YEARS AGO, EXACT DATE UNKNOWN)
     Route: 048
  16. QUETIAPINE [Concomitant]
     Active Substance: QUETIAPINE
     Indication: Depression
     Dosage: 1/4 (TABLET) OF 100 MG, QD
     Route: 048
     Dates: start: 2011
  17. ATORVASTATIN [Concomitant]
     Active Substance: ATORVASTATIN
     Indication: Blood cholesterol increased
     Dosage: 1 (TABLET) OF 20 MG, QD
     Route: 048
     Dates: start: 2023
  18. CALCIUM [Concomitant]
     Active Substance: CALCIUM
     Indication: Product used for unknown indication
     Dosage: 1 DOSAGE FORM (TABLET), QD
     Route: 048
     Dates: start: 202401, end: 202403
  19. ALPRAZOLAM [Concomitant]
     Active Substance: ALPRAZOLAM
     Indication: Anxiety
     Dosage: 1/2 (TABLET) OF 2 MG, Q12H
     Route: 048
     Dates: start: 202401, end: 202409
  20. EXEMESTANE [Concomitant]
     Active Substance: EXEMESTANE
     Indication: Breast cancer
     Dosage: 1 (TABLET) OF 25 MG, QD
     Route: 048
     Dates: start: 202406, end: 202407
  21. VITAMIN B COMPLEX [Concomitant]
     Active Substance: CYANOCOBALAMIN\DEXPANTHENOL\NIACINAMIDE\PYRIDOXINE HYDROCHLORIDE\RIBOFLAVIN 5^-PHOSPHATE SODIUM\THIA
     Indication: Product used for unknown indication
     Dosage: 1 DOSAGE FORM, TABLET, QD
     Route: 048
  22. LETROZOLE [Concomitant]
     Active Substance: LETROZOLE
     Indication: Breast cancer
     Dosage: 1 DOSAGE FORM, QD (2.5 MG TABLET)
     Route: 048
     Dates: start: 20240624
  23. METFORMIN [Concomitant]
     Active Substance: METFORMIN HYDROCHLORIDE
     Indication: Diabetes mellitus
     Dosage: 1 DOSAGE FORM, QD (1 OF 850MG)
     Route: 048
     Dates: start: 202402

REACTIONS (50)
  - Colitis [Not Recovered/Not Resolved]
  - Breast cancer [Unknown]
  - Malignant neoplasm progression [Unknown]
  - Breast mass [Not Recovered/Not Resolved]
  - Dyspnoea [Recovered/Resolved]
  - Dizziness [Recovered/Resolved]
  - Abdominal pain upper [Not Recovered/Not Resolved]
  - Nausea [Not Recovered/Not Resolved]
  - Dehydration [Not Recovered/Not Resolved]
  - Hyperhidrosis [Not Recovered/Not Resolved]
  - Feeling abnormal [Not Recovered/Not Resolved]
  - Fear [Not Recovered/Not Resolved]
  - Asthenia [Not Recovered/Not Resolved]
  - Weight decreased [Not Recovered/Not Resolved]
  - Fatigue [Recovering/Resolving]
  - Diarrhoea [Recovering/Resolving]
  - Malaise [Unknown]
  - Pain [Unknown]
  - Memory impairment [Recovering/Resolving]
  - Taste disorder [Recovering/Resolving]
  - Dysgeusia [Recovering/Resolving]
  - Rash [Recovering/Resolving]
  - Pruritus [Recovering/Resolving]
  - Foot deformity [Not Recovered/Not Resolved]
  - Skin discolouration [Not Recovered/Not Resolved]
  - Increased appetite [Recovered/Resolved]
  - Anaemia [Recovering/Resolving]
  - Arthralgia [Recovering/Resolving]
  - Constipation [Not Recovered/Not Resolved]
  - Insomnia [Recovering/Resolving]
  - Dry skin [Recovering/Resolving]
  - Pain in extremity [Recovering/Resolving]
  - Dengue fever [Recovered/Resolved]
  - Body height decreased [Unknown]
  - Tachycardia [Unknown]
  - Oral infection [Recovered/Resolved]
  - Oxygen saturation decreased [Unknown]
  - Tooth fracture [Recovered/Resolved]
  - Dental caries [Recovered/Resolved]
  - Choking sensation [Unknown]
  - Dyspnoea [Unknown]
  - Weight increased [Unknown]
  - Decreased immune responsiveness [Unknown]
  - Urticaria [Recovered/Resolved]
  - Urticaria [Unknown]
  - Erythema [Unknown]
  - White blood cell count abnormal [Unknown]
  - Hypersensitivity [Unknown]
  - Bronchitis [Recovering/Resolving]
  - Product use issue [Unknown]

NARRATIVE: CASE EVENT DATE: 20240601
